FAERS Safety Report 9013686 (Version 2)
Quarter: 2013Q1

REPORT INFORMATION
  Report Type: Spontaneous
  Country: US (occurrence: US)
  Receive Date: 20130115
  Receipt Date: 20130131
  Transmission Date: 20140127
  Serious: Yes (Death)
  Sender: FDA-Public Use
  Company Number: PHEH2013US001136

PATIENT
  Sex: Male

DRUGS (2)
  1. GLEEVEC [Suspect]
     Indication: NEOPLASM
     Dosage: 300 MG, BID
     Route: 048
     Dates: start: 20100304
  2. GLIPIZIDE [Concomitant]
     Dosage: UNK UKN, UNK

REACTIONS (1)
  - Chronic obstructive pulmonary disease [Fatal]
